FAERS Safety Report 22234299 (Version 1)
Quarter: 2023Q2

REPORT INFORMATION
  Report Type: Spontaneous
  Country: US (occurrence: None)
  Receive Date: 20230420
  Receipt Date: 20230420
  Transmission Date: 20230721
  Serious: No
  Sender: FDA-Public Use
  Company Number: US-ROCHE-3177000

PATIENT
  Sex: Male

DRUGS (6)
  1. ESBRIET [Suspect]
     Active Substance: PIRFENIDONE
     Indication: Chronic obstructive pulmonary disease
     Dosage: TAKE 2 CAPSULES BY MOUTH THREE TIMES A DAY
     Route: 048
  2. COENZYME Q10 [Concomitant]
     Active Substance: DIETARY SUPPLEMENT\UBIDECARENONE
  3. MESALAMINE [Concomitant]
     Active Substance: MESALAMINE
  4. OMEGA 3 [Concomitant]
     Active Substance: CAPSAICIN
  5. OMEPRAZOLE [Concomitant]
     Active Substance: OMEPRAZOLE
  6. TEMAZEPAM [Concomitant]
     Active Substance: TEMAZEPAM

REACTIONS (2)
  - Decreased appetite [Not Recovered/Not Resolved]
  - Dysphonia [Not Recovered/Not Resolved]
